FAERS Safety Report 6212232-0 (Version None)
Quarter: 2009Q2

REPORT INFORMATION
  Report Type: 
  Country: None (occurrence: None)
  Receive Date: 20090529
  Receipt Date: 20090513
  Transmission Date: 20091009
  Serious: Yes (Hospitalization, Other)
  Sender: FDA-Public Use
  Company Number: 20090104 /

PATIENT
  Age: 61 Year
  Sex: Female

DRUGS (2)
  1. VENOFER [Suspect]
     Indication: RENAL FAILURE CHRONIC
     Dosage: 100 MG ON 2 OCCASIONS INTRAVENOUS
     Route: 042
     Dates: start: 20090321, end: 20090324
  2. EPOGEN [Concomitant]

REACTIONS (2)
  - PRURITUS [None]
  - URTICARIA [None]
